FAERS Safety Report 10977692 (Version 2)
Quarter: 2015Q2

REPORT INFORMATION
  Report Type: Spontaneous
  Country: JP (occurrence: None)
  Receive Date: 20150330
  Receipt Date: 20150414
  Transmission Date: 20150821
  Serious: Yes (Hospitalization)
  Sender: FDA-Public Use
  Company Number: FK201501455

PATIENT
  Age: 75 Year
  Sex: Male

DRUGS (3)
  1. URACIL (URACIL) (URACIL) [Suspect]
     Active Substance: URACIL
     Indication: RECTAL CANCER
  2. TEGAFUR [Suspect]
     Active Substance: TEGAFUR
     Indication: RECTAL CANCER
  3. LEUCOVORIN CALCIUM. [Suspect]
     Active Substance: LEUCOVORIN CALCIUM
     Indication: RECTAL CANCER

REACTIONS (4)
  - Malignant neoplasm progression [None]
  - Drug eruption [None]
  - Neuropathy peripheral [None]
  - Metastases to lung [None]
